FAERS Safety Report 9404856 (Version 1)
Quarter: 2013Q3

REPORT INFORMATION
  Report Type: Spontaneous
  Country: FR (occurrence: FR)
  Receive Date: 20130717
  Receipt Date: 20130717
  Transmission Date: 20140515
  Serious: Yes (Other)
  Sender: FDA-Public Use
  Company Number: FR-JNJFOC-20130706526

PATIENT
  Age: 19 Year
  Sex: Female

DRUGS (8)
  1. REMICADE [Suspect]
     Indication: ANKYLOSING SPONDYLITIS
     Route: 042
     Dates: start: 20120701, end: 20130218
  2. REMICADE [Suspect]
     Indication: ANKYLOSING SPONDYLITIS
     Route: 042
     Dates: start: 20130430
  3. METHOTREXATE [Suspect]
     Indication: PRODUCT USED FOR UNKNOWN INDICATION
     Route: 048
     Dates: start: 20130426
  4. METHOTREXATE [Suspect]
     Indication: PRODUCT USED FOR UNKNOWN INDICATION
     Route: 048
     Dates: start: 20120601, end: 20130402
  5. TINZAPARIN SODIUM [Suspect]
     Indication: PRODUCT USED FOR UNKNOWN INDICATION
     Dosage: 1 DF (4500 IU ANTI XA/O.45 ML)
     Route: 058
     Dates: start: 20130325, end: 20130413
  6. SPECIAFOLDINE [Concomitant]
     Route: 048
     Dates: start: 20120601
  7. PARACETAMOL [Concomitant]
     Dosage: TAKEN PUNCTUALLY AND ON??REQUEST (NOT ENCODED BY THE AGENCY)
     Route: 065
  8. HUMIRA [Concomitant]
     Route: 065
     Dates: start: 2001, end: 201207

REACTIONS (2)
  - Hepatocellular injury [Recovered/Resolved]
  - Skeletal injury [Unknown]
